FAERS Safety Report 4758772-2 (Version None)
Quarter: 2005Q3

REPORT INFORMATION
  Report Type: 
  Country: None (occurrence: None)
  Receive Date: 20050826
  Receipt Date: 20050816
  Transmission Date: 20060218
  Serious: Yes (Hospitalization, Other)
  Sender: FDA-Public Use
  Company Number: 2005116779

PATIENT
  Sex: Female

DRUGS (2)
  1. PROVERA [Suspect]
     Indication: HORMONE REPLACEMENT THERAPY
     Dates: start: 19920801, end: 19940601
  2. PREMARIN [Suspect]
     Indication: HORMONE REPLACEMENT THERAPY
     Dates: start: 19920801, end: 19940601

REACTIONS (1)
  - BREAST CANCER FEMALE [None]
